FAERS Safety Report 4445463-0 (Version None)
Quarter: 2004Q3

REPORT INFORMATION
  Report Type: 
  Country: None (occurrence: None)
  Receive Date: 20040802
  Receipt Date: 20040423
  Transmission Date: 20050211
  Serious: No
  Sender: FDA-Public Use
  Company Number: 2004-115927-NL

PATIENT
  Age: 21 Year
  Sex: Female
  Weight: 72.7 kg

DRUGS (5)
  1. NUVARING [Suspect]
     Indication: CONTRACEPTION
     Dosage: DF DAILY VAGINAL
     Route: 067
  2. MONISTAT [Concomitant]
  3. LEXAPRO [Concomitant]
  4. SPIRONOLACTONE [Concomitant]
  5. MULTI-VITAMINS [Concomitant]

REACTIONS (3)
  - DEVICE FAILURE [None]
  - MEDICAL DEVICE DISCOMFORT [None]
  - VAGINAL MYCOSIS [None]
